FAERS Safety Report 21874183 (Version 1)
Quarter: 2023Q1

REPORT INFORMATION
  Report Type: Report from Study
  Country: CO (occurrence: CO)
  Receive Date: 20230117
  Receipt Date: 20230117
  Transmission Date: 20230418
  Serious: Yes (Death, Other)
  Sender: FDA-Public Use
  Company Number: CO-UNITED THERAPEUTICS-UNT-2023-001281

PATIENT

DRUGS (2)
  1. TREPROSTINIL SODIUM [Suspect]
     Active Substance: TREPROSTINIL SODIUM
     Indication: Pulmonary hypertension
     Dosage: 0.014 ?G/KG, CONTINUING
     Route: 058
     Dates: start: 202301
  2. TREPROSTINIL SODIUM [Suspect]
     Active Substance: TREPROSTINIL SODIUM
     Dosage: UNK, CONTINUING
     Route: 058
     Dates: start: 20230108, end: 20230113

REACTIONS (1)
  - Cardio-respiratory arrest [Fatal]

NARRATIVE: CASE EVENT DATE: 20230113
